FAERS Safety Report 6408152-9 (Version None)
Quarter: 2009Q4

REPORT INFORMATION
  Report Type: 
  Country: None (occurrence: None)
  Receive Date: 20091021
  Receipt Date: 20091012
  Transmission Date: 20100525
  Serious: Yes (Other)
  Sender: FDA-Public Use
  Company Number: HQWYE292507JUN04

PATIENT
  Sex: Female

DRUGS (9)
  1. PREMPRO [Suspect]
     Indication: HORMONE REPLACEMENT THERAPY
  2. PROVERA [Suspect]
     Indication: HORMONE REPLACEMENT THERAPY
  3. ESTRADERM [Suspect]
     Indication: HORMONE REPLACEMENT THERAPY
  4. ESTROGEN NOS [Suspect]
     Indication: MENOPAUSE
  5. ESTRACE [Suspect]
  6. CLIMARA [Suspect]
  7. DEPO-PROVERA [Suspect]
     Indication: MENOPAUSE
  8. PREMARIN [Suspect]
     Indication: OESTROGEN REPLACEMENT THERAPY
  9. MEDROXYPROGESTERONE ACETATE [Suspect]
     Indication: HORMONE REPLACEMENT THERAPY

REACTIONS (1)
  - BREAST CANCER METASTATIC [None]
